FAERS Safety Report 6544733-X (Version None)
Quarter: 2010Q1

REPORT INFORMATION
  Report Type: 
  Country: None (occurrence: None)
  Receive Date: 20100121
  Receipt Date: 20100111
  Transmission Date: 20100710
  Serious: Yes (Other)
  Sender: FDA-Public Use
  Company Number: US-JNJFOC-20100104956

PATIENT
  Sex: Female

DRUGS (11)
  1. TOPAMAX [Suspect]
     Indication: DYSKINESIA
     Route: 048
  2. TOPAMAX [Suspect]
     Route: 048
  3. TOPAMAX [Suspect]
     Route: 048
  4. TOPAMAX [Suspect]
     Route: 048
  5. TOPAMAX [Suspect]
     Route: 048
  6. TOPAMAX [Suspect]
     Indication: HEADACHE
     Route: 048
  7. TOPAMAX [Suspect]
     Route: 048
  8. TOPAMAX [Suspect]
     Route: 048
  9. TOPAMAX [Suspect]
     Route: 048
  10. TOPAMAX [Suspect]
     Route: 048
  11. UNSPECIFIED BIRTH CONTROL [Suspect]
     Indication: CONTRACEPTION
     Route: 065

REACTIONS (2)
  - DRUG INEFFECTIVE [None]
  - THROMBOSIS [None]
